FAERS Safety Report 4557668-9 (Version None)
Quarter: 2005Q1

REPORT INFORMATION
  Report Type: 
  Country: None (occurrence: None)
  Receive Date: 20050118
  Receipt Date: 20050111
  Transmission Date: 20050727
  Serious: Yes (Other)
  Sender: FDA-Public Use
  Company Number: 140568USA

PATIENT
  Age: 22 Year
  Sex: Female
  Weight: 45.8133 kg

DRUGS (2)
  1. COPAXONE [Suspect]
     Indication: MULTIPLE SCLEROSIS
     Dosage: 20 MILLIGRAM QD SUBCUTANEOUS
     Route: 058
     Dates: start: 20040628, end: 20040817
  2. ADVIL [Suspect]

REACTIONS (6)
  - ARTHRALGIA [None]
  - CHILLS [None]
  - DRUG SCREEN POSITIVE [None]
  - HEPATITIS [None]
  - PRURITUS GENERALISED [None]
  - RASH [None]
